FAERS Safety Report 8607714-8 (Version None)
Quarter: 2012Q3

REPORT INFORMATION
  Report Type: 
  Country: None (occurrence: None)
  Receive Date: 20120821
  Receipt Date: 20120807
  Transmission Date: 20120928
  Serious: Yes (Other)
  Sender: FDA-Public Use
  Company Number: US-ENDO PHARMACEUTICALS INC.-CLOZ20120015

PATIENT
  Sex: Male

DRUGS (1)
  1. CLONAZEPAM [Suspect]
     Indication: MENTAL DISORDER
     Dosage: UNKNOWN
     Route: 048
     Dates: end: 20120501

REACTIONS (7)
  - HOMICIDAL IDEATION [None]
  - WITHDRAWAL SYNDROME [None]
  - ABNORMAL BEHAVIOUR [None]
  - SUICIDAL IDEATION [None]
  - ANGER [None]
  - FRUSTRATION [None]
  - IRRITABILITY [None]
